FAERS Safety Report 8954822 (Version 2)
Quarter: 2012Q4

REPORT INFORMATION
  Report Type: 
  Country: US (occurrence: US)
  Receive Date: 20121207
  Receipt Date: 20121228
  Transmission Date: 20130627
  Serious: No
  Sender: FDA-Public Use
  Company Number: US-VERTEX PHARMACEUTICALS INC.-2012-025410

PATIENT
  Age: 50 Year
  Sex: Female

DRUGS (28)
  1. KALYDECO [Suspect]
     Indication: CYSTIC FIBROSIS
     Dosage: 150 mg, qd
     Route: 048
     Dates: start: 20121003, end: 20121011
  2. KALYDECO [Suspect]
     Dosage: 150 mg, twice a week
     Dates: start: 20121011, end: 20121019
  3. NEORAL [Suspect]
     Dosage: 100 mg, bid
     Route: 048
  4. PREDNISONE [Concomitant]
     Dosage: 10 mg, qod
     Route: 048
  5. ZITHROMAX [Concomitant]
     Dosage: 250 mg, three times a week
     Route: 048
  6. RITUXAN [Concomitant]
     Indication: LYMPHOMA
     Dosage: every six months
     Route: 040
  7. KETOCONAZOLE [Concomitant]
     Dosage: 50 mg, qd
     Route: 048
  8. VALTRAX [Concomitant]
     Dosage: 500 mg, bid
     Route: 048
  9. PRILOSEC                           /00661201/ [Concomitant]
     Dosage: 20 mg, bid
     Route: 048
  10. RANITIDINE HCL [Concomitant]
     Dosage: 75 mg, qd
     Route: 048
  11. ACTONEL [Concomitant]
     Dosage: 35 mg, qw
     Route: 048
  12. LEVOTHYROXINE [Concomitant]
     Dosage: 25 ?g, qd
     Route: 048
  13. GLIPIZIDE [Concomitant]
     Dosage: 10 mg, qd
     Route: 048
  14. NOVOLOG [Concomitant]
     Dosage: 100 UNK, bid
     Route: 058
  15. ADEKS                              /06351501/ [Concomitant]
     Dosage: 1 DF, qd
     Route: 048
  16. FERROUS SULFATE [Concomitant]
     Dosage: 325 mg, qd
     Route: 048
  17. FOLIC ACID [Concomitant]
     Dosage: 1 mg, qd
     Route: 048
  18. CALCIUM CITRATE [Concomitant]
     Dosage: 1 DF, tid
     Route: 048
  19. MAGNESIUM [Concomitant]
     Dosage: 400 mg, qd
     Route: 048
  20. POTASSIUM CITRATE [Concomitant]
     Dosage: 1 DF, tid
     Route: 048
  21. FISH OIL [Concomitant]
     Dosage: 1200 mg, qd
     Route: 048
  22. VIVELLE-DOT [Concomitant]
     Dosage: 0.037 mg, qd
     Route: 062
  23. AVASTIN /00848101/ [Concomitant]
  24. ZOLPIDEM [Concomitant]
     Indication: INSOMNIA
     Dosage: 5 mg, qd
     Route: 048
  25. PANCREASE                          /00014701/ [Concomitant]
  26. MIRALAX                            /00754501/ [Concomitant]
     Dosage: UNK, bid
     Route: 048
  27. VITAMIN D /00107901/ [Concomitant]
     Dosage: 1000 UNK, qd
  28. ALBUTEROL                          /00139501/ [Concomitant]
     Dosage: 2 puffs every 6  hours
     Route: 055

REACTIONS (2)
  - Drug level increased [Recovered/Resolved]
  - Drug interaction [Recovered/Resolved]
